FAERS Safety Report 5444119-5 (Version None)
Quarter: 2007Q3

REPORT INFORMATION
  Report Type: 
  Country: None (occurrence: None)
  Receive Date: 20070831
  Receipt Date: 20070829
  Transmission Date: 20080115
  Serious: Yes (Other)
  Sender: FDA-Public Use
  Company Number: 2007SP017327

PATIENT
  Age: 39 Year
  Sex: Male

DRUGS (5)
  1. DESLORATADINE [Suspect]
     Indication: DRUG USE FOR UNKNOWN INDICATION
     Dosage: 5 MG;QD;PO
     Route: 048
     Dates: start: 20070327, end: 20070427
  2. CHAMPIX (NO PREF. NAME) [Suspect]
     Indication: TOBACCO USER
     Dosage: PO
     Route: 048
     Dates: start: 20070430, end: 20070514
  3. PAROXETINE [Suspect]
     Indication: DEPRESSION
     Dosage: 20 MG;QD;PO
     Route: 048
     Dates: end: 20070614
  4. OXAZEPAM [Suspect]
     Indication: TOBACCO USER
     Dosage: 30 MG;QD;PO; 50 MG;QD;PO
     Route: 048
     Dates: start: 20070327, end: 20070513
  5. OXAZEPAM [Suspect]
     Indication: TOBACCO USER
     Dosage: 30 MG;QD;PO; 50 MG;QD;PO
     Route: 048
     Dates: start: 20070514

REACTIONS (6)
  - AGGRESSION [None]
  - AGITATION [None]
  - ANXIETY [None]
  - NAUSEA [None]
  - PARAESTHESIA [None]
  - VOMITING [None]
